FAERS Safety Report 6642689-2 (Version None)
Quarter: 2010Q1

REPORT INFORMATION
  Report Type: 
  Country: None (occurrence: None)
  Receive Date: 20100319
  Receipt Date: 20100318
  Transmission Date: 20100710
  Serious: Yes (Death)
  Sender: FDA-Public Use
  Company Number: JP-ABBOTT-10P-087-0632060-00

PATIENT
  Sex: Female

DRUGS (5)
  1. KLARICID TABLETS [Suspect]
     Indication: PNEUMONIA
     Route: 048
     Dates: start: 20100208, end: 20100309
  2. RIFAMPICIN [Concomitant]
     Indication: PNEUMONIA
     Dosage: 600MG DAILY
     Route: 048
     Dates: start: 20100208, end: 20100302
  3. ETHAMBUTOL HYDROCHLORIDE [Concomitant]
     Indication: PNEUMONIA
     Dosage: 500MG DAILY
     Route: 048
     Dates: start: 20100208, end: 20100302
  4. AMIKACIN SULFATE [Concomitant]
     Indication: PNEUMONIA
     Dosage: 220MG DAILY
     Route: 042
     Dates: start: 20100303, end: 20100309
  5. IMIPENEM HYDRATE CILASTATIN SODIUM (TIENAM) [Concomitant]
     Indication: PNEUMONIA
     Dosage: 1 GRAM DAILY
     Dates: start: 20100208, end: 20100309

REACTIONS (1)
  - BACTERAEMIA [None]
